FAERS Safety Report 8139983-5 (Version None)
Quarter: 2012Q1

REPORT INFORMATION
  Report Type: 
  Country: None (occurrence: None)
  Receive Date: 20120215
  Receipt Date: 20120207
  Transmission Date: 20120608
  Serious: Yes (Hospitalization, Other)
  Sender: FDA-Public Use
  Company Number: US-MERCK-1110USA00456

PATIENT
  Age: 70 Year
  Sex: Female
  Weight: 56 kg

DRUGS (3)
  1. FOSAMAX [Suspect]
     Indication: BONE DENSITY DECREASED
     Route: 048
     Dates: start: 19980301, end: 20090401
  2. FOSAMAX [Suspect]
     Route: 048
     Dates: end: 20090401
  3. FOSAMAX [Suspect]
     Route: 048

REACTIONS (44)
  - UPPER RESPIRATORY TRACT INFECTION [None]
  - FATIGUE [None]
  - MOUTH ULCERATION [None]
  - FALL [None]
  - IMPAIRED HEALING [None]
  - MALAISE [None]
  - PAIN [None]
  - OSTEOPOROSIS [None]
  - BACK PAIN [None]
  - ATRIAL FIBRILLATION [None]
  - BURSITIS [None]
  - JAW DISORDER [None]
  - TOOTH DISORDER [None]
  - POLLAKIURIA [None]
  - ORAL INFECTION [None]
  - PULMONARY EMBOLISM [None]
  - HYPERTENSION [None]
  - HEADACHE [None]
  - PAIN IN JAW [None]
  - KYPHOSCOLIOSIS [None]
  - HYPERCALCAEMIA [None]
  - ANXIETY [None]
  - INFECTION [None]
  - THYROID DISORDER [None]
  - CONFUSIONAL STATE [None]
  - CONJUNCTIVITIS [None]
  - CARDIAC FAILURE [None]
  - DIZZINESS [None]
  - ISCHAEMIC CARDIOMYOPATHY [None]
  - INSOMNIA [None]
  - FLUID RETENTION [None]
  - SPINAL OSTEOARTHRITIS [None]
  - LACERATION [None]
  - BLOOD CHOLESTEROL INCREASED [None]
  - CORONARY ARTERY DISEASE [None]
  - DENTAL CARIES [None]
  - PNEUMONIA [None]
  - ORAL TORUS [None]
  - INAPPROPRIATE SCHEDULE OF DRUG ADMINISTRATION [None]
  - DEPRESSION [None]
  - OSTEONECROSIS OF JAW [None]
  - DEHYDRATION [None]
  - BUNDLE BRANCH BLOCK LEFT [None]
  - STRESS [None]
